FAERS Safety Report 16735285 (Version 1)
Quarter: 2019Q3

REPORT INFORMATION
  Report Type: Spontaneous
  Country: US (occurrence: US)
  Receive Date: 20190823
  Receipt Date: 20190823
  Transmission Date: 20191005
  Serious: No
  Sender: FDA-Public Use
  Company Number: US-TRIS PHARMA, INC.-19US000161

PATIENT

DRUGS (3)
  1. QUILLIVANT XR [Suspect]
     Active Substance: METHYLPHENIDATE HYDROCHLORIDE
     Dosage: 6 MILLILITER, QD PRN
     Route: 048
     Dates: start: 2019, end: 2019
  2. QUILLIVANT XR [Suspect]
     Active Substance: METHYLPHENIDATE HYDROCHLORIDE
     Indication: ATTENTION DEFICIT/HYPERACTIVITY DISORDER
     Dosage: 6 MILLILITER, QD PRN
     Route: 048
     Dates: start: 2019
  3. QUILLIVANT XR [Suspect]
     Active Substance: METHYLPHENIDATE HYDROCHLORIDE
     Dosage: UNK MILLILITER, QD
     Route: 048
     Dates: start: 2017, end: 2019

REACTIONS (7)
  - Pallor [Unknown]
  - Incorrect dose administered [Unknown]
  - Product measured potency issue [Unknown]
  - Lethargy [Unknown]
  - Nausea [Unknown]
  - Abdominal pain upper [Unknown]
  - Product preparation issue [Unknown]
